FAERS Safety Report 19841232 (Version 1)
Quarter: 2021Q3

REPORT INFORMATION
  Report Type: Report from Study
  Country: US (occurrence: US)
  Receive Date: 20210915
  Receipt Date: 20210915
  Transmission Date: 20211014
  Serious: No
  Sender: FDA-Public Use
  Company Number: US-ALLERGAN-2131852US

PATIENT
  Age: 17 Year
  Sex: Male
  Weight: 74.38 kg

DRUGS (6)
  1. TROPICAMIDE. [Concomitant]
     Active Substance: TROPICAMIDE
     Indication: PUPIL DILATION PROCEDURE
     Dosage: 1 GTT, SINGLE
     Route: 061
     Dates: start: 20210826, end: 20210826
  2. LORAZEPAM. [Concomitant]
     Active Substance: LORAZEPAM
     Indication: ANXIETY
     Dosage: 1 MG, PRN(BID)
     Route: 048
     Dates: start: 20210813
  3. CARIPRAZINE HCL 3MG CAP (TBD) [Suspect]
     Active Substance: CARIPRAZINE HYDROCHLORIDE
     Indication: PRODUCT USED FOR UNKNOWN INDICATION
     Dosage: 3 MG, QD
     Route: 048
     Dates: start: 20210826
  4. TROPICAMIDE. [Concomitant]
     Active Substance: TROPICAMIDE
     Dosage: 1 GTT, SINGLE
     Route: 061
     Dates: start: 20210308, end: 20210308
  5. PROPARACAINE [PROXYMETACAINE] [Concomitant]
     Indication: ANAESTHETIC OPHTHALMIC PROCEDURE
     Dosage: 1 GTT, SINGLE
     Route: 061
     Dates: start: 20210826, end: 20210826
  6. PROPARACAINE [PROXYMETACAINE] [Concomitant]
     Dosage: 1 GTT, SINGLE
     Route: 061
     Dates: start: 20210308, end: 20210308

REACTIONS (1)
  - Cataract nuclear [Recovering/Resolving]

NARRATIVE: CASE EVENT DATE: 20210826
